FAERS Safety Report 5942132-2 (Version None)
Quarter: 2008Q4

REPORT INFORMATION
  Report Type: 
  Country: None (occurrence: None)
  Receive Date: 20081105
  Receipt Date: 20081027
  Transmission Date: 20090506
  Serious: Yes (Hospitalization)
  Sender: FDA-Public Use
  Company Number: US-KINGPHARMUSA00001-K200801245

PATIENT

DRUGS (1)
  1. SEPTRA [Suspect]
     Indication: URINARY TRACT INFECTION

REACTIONS (6)
  - ACUTE HEPATIC FAILURE [None]
  - JAUNDICE [None]
  - MALAISE [None]
  - NAUSEA [None]
  - OCULAR ICTERUS [None]
  - VOMITING [None]
